FAERS Safety Report 15713584 (Version 2)
Quarter: 2018Q4

REPORT INFORMATION
  Report Type: Report from Study
  Country: IT (occurrence: IT)
  Receive Date: 20181212
  Receipt Date: 20181227
  Transmission Date: 20190205
  Serious: Yes (Other)
  Sender: FDA-Public Use
  Company Number: IT-GLAXOSMITHKLINE-IT2018GSK217777

PATIENT
  Age: 50 Year
  Sex: Female

DRUGS (2)
  1. BELIMUMAB [Suspect]
     Active Substance: BELIMUMAB
     Indication: BASEDOW^S DISEASE
     Dosage: 10 MG/KG, CYC
     Dates: start: 20160831
  2. BELIMUMAB [Suspect]
     Active Substance: BELIMUMAB
     Indication: ENDOCRINE OPHTHALMOPATHY

REACTIONS (5)
  - Thyroid disorder [Unknown]
  - Thyroidectomy [Unknown]
  - Thyroid mass [Unknown]
  - Papillary thyroid cancer [Unknown]
  - Goitre [Unknown]
